FAERS Safety Report 8504909-9 (Version None)
Quarter: 2012Q3

REPORT INFORMATION
  Report Type: 
  Country: None (occurrence: None)
  Receive Date: 20120702
  Receipt Date: 20120618
  Transmission Date: 20120928
  Serious: Yes (Death, Hospitalization)
  Sender: FDA-Public Use
  Company Number: 2012DE0104

PATIENT
  Age: 70 Year
  Sex: Female

DRUGS (5)
  1. OPTORAL (CYCLOSPORIN A) [Concomitant]
  2. KINERET [Suspect]
     Dosage: 100 MG (100 MG, 1 IN 1 D)
     Dates: start: 20111101, end: 20120116
  3. PREDNISOLONE [Concomitant]
  4. NOVAMIN (PROCHLORPERAZINE) [Concomitant]
  5. PANTOZOL (PANTOPRAZOLE) [Concomitant]

REACTIONS (6)
  - SKIN EXFOLIATION [None]
  - CARDIAC FAILURE [None]
  - DIVERTICULITIS [None]
  - ROTATOR CUFF SYNDROME [None]
  - IMPAIRED HEALING [None]
  - GASTROINTESTINAL STOMA NECROSIS [None]
